FAERS Safety Report 5357234-1 (Version None)
Quarter: 2007Q2

REPORT INFORMATION
  Report Type: 
  Country: None (occurrence: None)
  Receive Date: 20070612
  Receipt Date: 20070612
  Transmission Date: 20071010
  Serious: Yes (Hospitalization)
  Sender: FDA-Public Use
  Company Number: None

PATIENT
  Sex: Female
  Weight: 0.6 kg

DRUGS (1)
  1. ATIVAN [Suspect]
     Indication: CENTRAL VENOUS CATHETERISATION
     Dates: start: 20070531, end: 20070531

REACTIONS (1)
  - MYOCLONUS [None]
